FAERS Safety Report 14842944 (Version 1)
Quarter: 2018Q2

REPORT INFORMATION
  Report Type: Spontaneous
  Country: US (occurrence: US)
  Receive Date: 20180503
  Receipt Date: 20180503
  Transmission Date: 20180711
  Serious: No
  Sender: FDA-Public Use
  Company Number: US-ROMARKLABS-2018-US-000004

PATIENT
  Age: 28 Year
  Sex: Female

DRUGS (6)
  1. ALINIA [Suspect]
     Active Substance: NITAZOXANIDE
     Indication: INFECTION PARASITIC
     Dosage: 1 TABLET ONCE DAILY
     Route: 048
     Dates: start: 20180107, end: 20180110
  2. LEVOTHYROXINE. [Concomitant]
     Active Substance: LEVOTHYROXINE
     Indication: HYPOTHYROIDISM
     Route: 048
  3. AZITHROMYCIN ANHYDROUS. [Concomitant]
     Active Substance: AZITHROMYCIN ANHYDROUS
     Indication: PRODUCT USED FOR UNKNOWN INDICATION
     Route: 048
  4. ALINIA [Suspect]
     Active Substance: NITAZOXANIDE
     Indication: INFECTION PARASITIC
     Dosage: 1/2 TABLET ONE TIME
     Route: 048
     Dates: start: 20180111, end: 20180111
  5. NYSTATIN. [Concomitant]
     Active Substance: NYSTATIN
     Route: 048
  6. FLORINEF ACETATE [Concomitant]
     Active Substance: FLUDROCORTISONE ACETATE
     Indication: POSTURAL ORTHOSTATIC TACHYCARDIA SYNDROME
     Route: 048

REACTIONS (2)
  - Chromaturia [Unknown]
  - Dizziness [Not Recovered/Not Resolved]

NARRATIVE: CASE EVENT DATE: 20180107
